FAERS Safety Report 21941405 (Version 1)
Quarter: 2023Q1

REPORT INFORMATION
  Report Type: Spontaneous
  Country: JP (occurrence: JP)
  Receive Date: 20230202
  Receipt Date: 20230202
  Transmission Date: 20230417
  Serious: No
  Sender: FDA-Public Use
  Company Number: JP-TAKEDA-2022TJP066683

PATIENT
  Age: 82 Year
  Sex: Female

DRUGS (1)
  1. CABOMETYX [Suspect]
     Active Substance: CABOZANTINIB S-MALATE
     Indication: Hepatocellular carcinoma
     Dosage: 20 MG, 3/WEEK
     Route: 048
     Dates: start: 20220613

REACTIONS (3)
  - Lymphadenopathy [Unknown]
  - Palmar-plantar erythrodysaesthesia syndrome [Unknown]
  - Inappropriate schedule of product administration [Unknown]
